FAERS Safety Report 9722997 (Version 1)
Quarter: 2013Q4

REPORT INFORMATION
  Report Type: Spontaneous
  Country: FR (occurrence: None)
  Receive Date: 20131126
  Receipt Date: 20131126
  Transmission Date: 20140711
  Serious: Yes (Death, Hospitalization)
  Sender: FDA-Public Use
  Company Number: 2012FR000774

PATIENT
  Age: 36 Year
  Sex: Female

DRUGS (12)
  1. PONATINIB (AP24534) TABLET [Suspect]
     Indication: CHRONIC MYELOID LEUKAEMIA
     Route: 048
     Dates: start: 20120605, end: 20120615
  2. VFEND (VORICONAZOLE) [Concomitant]
  3. ZYLORIC (ALLOPURINOL) [Concomitant]
  4. MOPRAL (OMEPRAZOLE) [Concomitant]
  5. SPRYCEL (DASATINIB MONOHYDRATE) [Concomitant]
  6. ORACILLIN (PHENOXYMETHYLPENICILLIN POTASSIUM) [Concomitant]
  7. LASILIX (FUROSEMIDE) [Concomitant]
  8. LYSANXIA (PRAZEPAM) [Concomitant]
  9. ZELITREX (VALACICLOVIR HYDROCHLORIDE) [Concomitant]
  10. ZOPICLONE (ZOPICLONE) [Concomitant]
  11. CORTANCYL (PREDNISONE) [Suspect]
  12. HOMOHARRINGTONINE (HEMOHARRINGTONINE) [Concomitant]

REACTIONS (4)
  - Respiratory distress [None]
  - Febrile bone marrow aplasia [None]
  - Pancreatitis acute [None]
  - Acute myeloid leukaemia [None]
